FAERS Safety Report 8042473-1 (Version None)
Quarter: 2012Q1

REPORT INFORMATION
  Report Type: 
  Country: None (occurrence: None)
  Receive Date: 20120112
  Receipt Date: 20120109
  Transmission Date: 20120608
  Serious: Yes (Other)
  Sender: FDA-Public Use
  Company Number: US-PFIZER INC-2012006469

PATIENT
  Sex: Female
  Weight: 51.701 kg

DRUGS (5)
  1. LYRICA [Suspect]
     Indication: NEURALGIA
     Dosage: 25 MG, 1X/DAY
     Route: 048
     Dates: start: 20110101, end: 20120102
  2. CELEBREX [Concomitant]
     Indication: ARTHRITIS
     Dosage: UNK
  3. EXCEDRIN (MIGRAINE) [Concomitant]
     Indication: PAIN
     Dosage: UNK
  4. EXCEDRIN (MIGRAINE) [Concomitant]
     Indication: BACK PAIN
  5. LYRICA [Suspect]
     Indication: NERVE INJURY

REACTIONS (5)
  - VISION BLURRED [None]
  - HEARING IMPAIRED [None]
  - DISTURBANCE IN ATTENTION [None]
  - SOMNOLENCE [None]
  - DEPRESSION [None]
